FAERS Safety Report 7336358-3 (Version None)
Quarter: 2011Q1

REPORT INFORMATION
  Report Type: 
  Country: None (occurrence: None)
  Receive Date: 20110222
  Receipt Date: 20110204
  Transmission Date: 20110831
  Serious: Yes (Hospitalization, Congenital Anomaly)
  Sender: FDA-Public Use
  Company Number: AUR-APL-2011-00383

PATIENT
  Age: 0 Week
  Sex: Male
  Weight: 3.71 kg

DRUGS (1)
  1. PAROXETINE HCL [Suspect]
     Indication: DEPRESSION
     Dosage: 25MG-QD-TRANSPLACENTAL
     Route: 064

REACTIONS (4)
  - TALIPES [None]
  - NEONATAL RESPIRATORY DISTRESS SYNDROME [None]
  - MATERNAL DRUGS AFFECTING FOETUS [None]
  - AGITATION NEONATAL [None]
